FAERS Safety Report 12978003 (Version 1)
Quarter: 2016Q4

REPORT INFORMATION
  Report Type: Spontaneous
  Country: US (occurrence: US)
  Receive Date: 20161125
  Receipt Date: 20161125
  Transmission Date: 20170207
  Serious: Yes (Disabling)
  Sender: FDA-Public Use
  Company Number: None

PATIENT
  Age: 58 Year
  Sex: Female
  Weight: 85.95 kg

DRUGS (10)
  1. DICLOFENAC SODIUM GEL [Concomitant]
     Active Substance: DICLOFENAC SODIUM
  2. MEQ (K-DUR, KLOR-CON) [Concomitant]
  3. POTASSIUM CHLORIDE SA (K-DUR, KLOR-CON) [Concomitant]
  4. PRAVASTATIN SODIUM. [Suspect]
     Active Substance: PRAVASTATIN SODIUM
     Indication: BLOOD CHOLESTEROL INCREASED
     Dosage: ?          QUANTITY:30 TABLET(S);?
     Route: 048
     Dates: start: 20160901, end: 20161102
  5. ESCITALOPRAM OXALATE (LEXAPRO) [Concomitant]
  6. LOPRESSOR [Concomitant]
     Active Substance: METOPROLOL TARTRATE
  7. HYDROCHLOROTHIAZIDE (HYDRODIURIL) [Concomitant]
  8. CYCLOBENZAPRINE (FLEXERIL) [Concomitant]
  9. NIFEDIPINE (PROCARDIA- XL) [Concomitant]
  10. PRAVACHOL [Concomitant]
     Active Substance: PRAVASTATIN SODIUM

REACTIONS (13)
  - Pain in extremity [None]
  - Rash [None]
  - Pruritus [None]
  - Muscle tightness [None]
  - Gait disturbance [None]
  - Insomnia [None]
  - Musculoskeletal stiffness [None]
  - Nausea [None]
  - Activities of daily living impaired [None]
  - Arthritis [None]
  - Asthenia [None]
  - Burning sensation [None]
  - Pain [None]

NARRATIVE: CASE EVENT DATE: 20161005
